FAERS Safety Report 11674877 (Version 4)
Quarter: 2015Q4

REPORT INFORMATION
  Report Type: Report from Study
  Country: US (occurrence: US)
  Receive Date: 20151028
  Receipt Date: 20151228
  Transmission Date: 20160304
  Serious: Yes (Hospitalization, Other)
  Sender: FDA-Public Use
  Company Number: US-BAYER-2015-200530

PATIENT
  Age: 61 Year
  Sex: Male

DRUGS (3)
  1. NEXAVAR [Suspect]
     Active Substance: SORAFENIB
     Indication: NEOPLASM MALIGNANT
     Dosage: 600 MG, QD (2 AM, 1 PM)
     Route: 048
     Dates: start: 2015
  2. NEXAVAR [Suspect]
     Active Substance: SORAFENIB
     Indication: NEOPLASM MALIGNANT
     Dosage: 400 MG, BID
     Route: 048
     Dates: start: 20150406
  3. NEXAVAR [Suspect]
     Active Substance: SORAFENIB
     Indication: NEOPLASM MALIGNANT
     Dosage: 400 MG, BID
     Route: 048
     Dates: start: 2015

REACTIONS (10)
  - Vomiting [None]
  - Chest pain [None]
  - Influenza like illness [None]
  - Fatigue [None]
  - Arterial rupture [None]
  - Nausea [None]
  - Muscle spasms [None]
  - Abdominal discomfort [None]
  - Gastric haemorrhage [None]
  - Fatigue [Not Recovered/Not Resolved]

NARRATIVE: CASE EVENT DATE: 20150504
